FAERS Safety Report 7215443-0 (Version None)
Quarter: 2011Q1

REPORT INFORMATION
  Report Type: 
  Country: None (occurrence: None)
  Receive Date: 20110107
  Receipt Date: 20110105
  Transmission Date: 20110831
  Serious: Yes (Death)
  Sender: FDA-Public Use
  Company Number: FR-ROCHE-685615

PATIENT
  Sex: Male
  Weight: 69 kg

DRUGS (12)
  1. BEVACIZUMAB [Suspect]
     Indication: NON-SMALL CELL LUNG CANCER
     Dosage: LAST DOSE PRIOR TO SAE: 11 FEB 2010, DOSAGE FORM: 100 MG(B5005) AND 400 MG (B5022)
     Route: 042
     Dates: start: 20100211, end: 20100219
  2. CISPLATIN [Suspect]
     Indication: NON-SMALL CELL LUNG CANCER
     Dosage: LAST DOSE PRIOR TO SAE: 11 FEB 2010
     Route: 042
     Dates: start: 20100121, end: 20100219
  3. CONTRAMAL [Suspect]
     Route: 065
  4. INDAPAMIDE [Concomitant]
     Dates: start: 20100127, end: 20100213
  5. ZOPHREN [Concomitant]
     Dates: start: 20100212, end: 20100213
  6. SPECIAFOLDINE [Concomitant]
     Dates: start: 20100111
  7. SOLUPRED [Concomitant]
     Dates: start: 20100210
  8. ZOPICLONE [Concomitant]
     Dates: start: 20100126
  9. LOXEN [Concomitant]
     Dates: start: 20100107
  10. PEMETREXED [Suspect]
     Indication: NON-SMALL CELL LUNG CANCER
     Dosage: LAST DOSE PRIOR TO SAE: 11 FEB 2010
     Route: 042
     Dates: start: 20100121, end: 20100219
  11. ALDACTONE [Concomitant]
     Dates: start: 20100127
  12. DOLIPRANE [Concomitant]
     Dates: start: 20100111

REACTIONS (2)
  - EMBOLISM VENOUS [None]
  - ARTERIAL THROMBOSIS [None]
